FAERS Safety Report 18921770 (Version 1)
Quarter: 2021Q1

REPORT INFORMATION
  Report Type: Spontaneous
  Country: US (occurrence: US)
  Receive Date: 20210219
  Receipt Date: 20210219
  Transmission Date: 20210420
  Serious: Yes (Other)
  Sender: FDA-Public Use
  Company Number: None

PATIENT
  Age: 59 Year
  Sex: Female
  Weight: 76.05 kg

DRUGS (2)
  1. METOPROLOL SUCC [Suspect]
     Active Substance: METOPROLOL SUCCINATE
     Indication: BLOOD PRESSURE INCREASED
     Dosage: ?
     Route: 048
     Dates: start: 20210126, end: 20210219
  2. METHIMAZOLE 5MG [Concomitant]

REACTIONS (11)
  - Palpitations [None]
  - Rhinorrhoea [None]
  - Dry mouth [None]
  - Chest discomfort [None]
  - Anxiety [None]
  - Irritability [None]
  - Oropharyngeal pain [None]
  - Peripheral coldness [None]
  - Heart rate irregular [None]
  - Constipation [None]
  - Respiration abnormal [None]

NARRATIVE: CASE EVENT DATE: 20210219
